FAERS Safety Report 11993205 (Version 1)
Quarter: 2016Q1

REPORT INFORMATION
  Report Type: Spontaneous
  Country: FR (occurrence: FR)
  Receive Date: 20160203
  Receipt Date: 20160203
  Transmission Date: 20160526
  Serious: Yes (Hospitalization)
  Sender: FDA-Public Use
  Company Number: FR-ACCORD-037406

PATIENT
  Age: 42 Year
  Sex: Male
  Weight: 70 kg

DRUGS (4)
  1. TAXOTERE [Suspect]
     Active Substance: DOCETAXEL
     Indication: TONSIL CANCER
     Dosage: DOSE: 136 MG PER CYCLE FROM DAY-01 (04-JAN-2016) TO DAY 03
     Route: 042
     Dates: start: 20160104
  2. CISPLATIN ACCORD [Suspect]
     Active Substance: CISPLATIN
     Indication: TONSIL CANCER
     Dosage: DAILY DOSE: 36 MG PER DAY FROM DAY 01 (04-JAN-2016) TO DAY 04 (07-JAN-2016).
     Route: 042
     Dates: start: 20160104, end: 20160107
  3. NEULASTA [Concomitant]
     Active Substance: PEGFILGRASTIM
     Dosage: STRENGTH: 06 MG??DOSE: ONE SUBCUTANEOUS INJECTION ON DAY 04.
     Route: 058
  4. FLUOROURACIL ACCORD [Suspect]
     Active Substance: FLUOROURACIL
     Indication: TONSIL CANCER
     Dosage: DOSE: 1350 MG ONE TIME IN 46 HOURS ON DAY 01 (04-JAN-2016) AND DAY 03 (06-JAN-2016)
     Route: 042
     Dates: start: 20160104, end: 20160106

REACTIONS (2)
  - Mixed liver injury [Not Recovered/Not Resolved]
  - Off label use [Unknown]

NARRATIVE: CASE EVENT DATE: 20160108
